FAERS Safety Report 24978741 (Version 1)
Quarter: 2025Q1

REPORT INFORMATION
  Report Type: Spontaneous
  Country: CA (occurrence: CA)
  Receive Date: 20250218
  Receipt Date: 20250218
  Transmission Date: 20250409
  Serious: Yes (Hospitalization)
  Sender: ROCHE
  Company Number: CA-002147023-NVSC2025CA023574

PATIENT
  Age: 28 Year
  Sex: Female

DRUGS (12)
  1. OMALIZUMAB [Suspect]
     Active Substance: OMALIZUMAB
     Indication: Chronic spontaneous urticaria
     Dosage: 300 MG, Q4W (1 EVERY 4 WEEKS)
     Route: 058
  2. EBASTINE [Concomitant]
     Active Substance: EBASTINE
     Indication: Product used for unknown indication
     Route: 065
  3. ATARAX [Concomitant]
     Active Substance: HYDROXYZINE HYDROCHLORIDE
     Indication: Product used for unknown indication
     Route: 065
  4. BENADRYL [Concomitant]
     Active Substance: DIPHENHYDRAMINE HYDROCHLORIDE
     Indication: Product used for unknown indication
     Route: 065
  5. CETIRIZINE HYDROCHLORIDE [Concomitant]
     Active Substance: CETIRIZINE HYDROCHLORIDE
     Indication: Product used for unknown indication
     Dosage: 1 DOSAGE FORM, QD (1 EVERY 1 DAY)
     Route: 065
  6. CYCLOSPORINE [Concomitant]
     Active Substance: CYCLOSPORINE
     Indication: Asthma
     Route: 065
  7. FAMOTIDINE [Concomitant]
     Active Substance: FAMOTIDINE
     Indication: Product used for unknown indication
     Route: 065
  8. FAMOTIDINE [Concomitant]
     Active Substance: FAMOTIDINE
     Route: 065
  9. HYDROXYZINE HYDROCHLORIDE [Concomitant]
     Active Substance: HYDROXYZINE HYDROCHLORIDE
     Indication: Anxiety
     Route: 065
  10. MONTELUKAST [Concomitant]
     Active Substance: MONTELUKAST
     Indication: Chronic spontaneous urticaria
     Route: 065
  11. MONTELUKAST [Concomitant]
     Active Substance: MONTELUKAST
     Route: 065
  12. PREDNISONE [Concomitant]
     Active Substance: PREDNISONE
     Indication: Product used for unknown indication
     Route: 065

REACTIONS (3)
  - Ill-defined disorder [Unknown]
  - Mental disorder [Unknown]
  - Urticaria [Unknown]
